FAERS Safety Report 5057414-9 (Version None)
Quarter: 2006Q3

REPORT INFORMATION
  Report Type: 
  Country: None (occurrence: None)
  Receive Date: 20060721
  Receipt Date: 20050926
  Transmission Date: 20061208
  Serious: No
  Sender: FDA-Public Use
  Company Number: US-GLAXOSMITHKLINE-A0575915A

PATIENT
  Age: 46 Year
  Sex: Female

DRUGS (7)
  1. AVANDIA [Suspect]
     Dosage: 4MG PER DAY
     Route: 048
     Dates: start: 20030101
  2. ASACOL [Concomitant]
  3. GLIPIZIDE [Concomitant]
  4. ZANTAC [Concomitant]
  5. TOPAMAX [Concomitant]
  6. ASPIRIN [Concomitant]
  7. CLARITIN-D [Concomitant]

REACTIONS (3)
  - FLUID RETENTION [None]
  - JOINT SWELLING [None]
  - OEDEMA PERIPHERAL [None]
